FAERS Safety Report 10243481 (Version 1)
Quarter: 2014Q2

REPORT INFORMATION
  Report Type: Spontaneous
  Country: IN (occurrence: IN)
  Receive Date: 20140618
  Receipt Date: 20140618
  Transmission Date: 20141212
  Serious: Yes (Hospitalization)
  Sender: FDA-Public Use
  Company Number: IN-MYLANLABS-2014S1013872

PATIENT
  Age: 4 Month
  Sex: Female

DRUGS (4)
  1. SODIUM VALPROATE [Suspect]
     Indication: INFANTILE SPASMS
     Dosage: 30 MG/KG/DAY
     Route: 065
  2. SODIUM VALPROATE [Suspect]
     Indication: OFF LABEL USE
     Dosage: 30 MG/KG/DAY
     Route: 065
  3. CLONAZEPAM [Concomitant]
     Indication: INFANTILE SPASMS
     Route: 065
  4. CORTICOTROPIN [Concomitant]
     Indication: INFANTILE SPASMS
     Route: 065

REACTIONS (2)
  - Encephalopathy [Recovered/Resolved]
  - Toxicity to various agents [Recovered/Resolved]
